FAERS Safety Report 8002809-4 (Version None)
Quarter: 2011Q4

REPORT INFORMATION
  Report Type: 
  Country: None (occurrence: None)
  Receive Date: 20111222
  Receipt Date: 20101007
  Transmission Date: 20120403
  Serious: No
  Sender: FDA-Public Use
  Company Number: US-GLAXOSMITHKLINE-A0885456A

PATIENT
  Age: 75 Year
  Sex: Male

DRUGS (6)
  1. ZOCOR [Concomitant]
  2. WATER PILL [Concomitant]
  3. MULTI-VITAMIN [Concomitant]
  4. NEXIUM [Concomitant]
  5. AVODART [Suspect]
     Indication: PROSTATOMEGALY
     Dosage: 5MG PER DAY
     Route: 048
     Dates: start: 20071201, end: 20101101
  6. GLUCOSAMINE [Concomitant]

REACTIONS (3)
  - HEADACHE [None]
  - RASH [None]
  - NAUSEA [None]
